FAERS Safety Report 25899464 (Version 2)
Quarter: 2025Q4

REPORT INFORMATION
  Report Type: Spontaneous
  Country: EU (occurrence: EU)
  Receive Date: 20251009
  Receipt Date: 20251024
  Transmission Date: 20260118
  Serious: Yes (Other)
  Sender: TEVA
  Company Number: EU-TEVA-VS-3378586

PATIENT
  Sex: Female

DRUGS (5)
  1. ENOXAPARIN [Suspect]
     Active Substance: ENOXAPARIN
     Indication: Thrombosis prophylaxis
     Route: 065
  2. PREGABALIN [Suspect]
     Active Substance: PREGABALIN
     Indication: Sciatica
     Route: 065
  3. SIROLIMUS [Concomitant]
     Active Substance: SIROLIMUS
     Indication: Sciatica
     Route: 065
  4. ALPELISIB [Suspect]
     Active Substance: ALPELISIB
     Indication: PIK3CA related overgrowth spectrum
     Route: 048
  5. ALPELISIB [Suspect]
     Active Substance: ALPELISIB
     Indication: PIK3CA related overgrowth spectrum
     Dosage: WAS STOPPED BEFORE PREGNANCY AND THEN LATER RESUMED AT SAME DOSAGE.
     Route: 048

REACTIONS (7)
  - PIK3CA related overgrowth spectrum [Recovering/Resolving]
  - Rebound effect [Recovering/Resolving]
  - Dry skin [Recovered/Resolved]
  - Vulvovaginal dryness [Recovered/Resolved]
  - Maternal exposure during pregnancy [Unknown]
  - Drug ineffective [Unknown]
  - Live birth [Unknown]
